FAERS Safety Report 12153873 (Version 2)
Quarter: 2016Q2

REPORT INFORMATION
  Report Type: Spontaneous
  Country: US (occurrence: US)
  Receive Date: 20160307
  Receipt Date: 20160406
  Transmission Date: 20160815
  Serious: Yes (Hospitalization)
  Sender: FDA-Public Use
  Company Number: US-009507513-1603USA002518

PATIENT
  Sex: Female

DRUGS (1)
  1. JANUVIA [Suspect]
     Active Substance: SITAGLIPTIN PHOSPHATE
     Indication: TYPE 2 DIABETES MELLITUS
     Dosage: 100 MG, QD (ONE TABLET/ONCE DAILY)
     Route: 048
     Dates: start: 201509

REACTIONS (7)
  - Adverse event [Recovering/Resolving]
  - Insomnia [Recovering/Resolving]
  - Musculoskeletal pain [Recovering/Resolving]
  - Bone pain [Recovering/Resolving]
  - Pneumonia [Recovering/Resolving]
  - Renal pain [Recovering/Resolving]
  - Rhinorrhoea [Recovering/Resolving]

NARRATIVE: CASE EVENT DATE: 2015
